FAERS Safety Report 15526725 (Version 2)
Quarter: 2018Q4

REPORT INFORMATION
  Report Type: Spontaneous
  Country: IE (occurrence: GB)
  Receive Date: 20181018
  Receipt Date: 20181231
  Transmission Date: 20190205
  Serious: Yes (Other)
  Sender: FDA-Public Use
  Company Number: IE-BAXTER-2018BAX024313

PATIENT

DRUGS (16)
  1. GLUCOSE 50% W/V CONCENTRATE FOR SOLUTION FOR INFUSION [Suspect]
     Active Substance: DEXTROSE
     Indication: PARENTERAL NUTRITION
     Route: 065
  2. ASCORBIC ACID. [Suspect]
     Active Substance: ASCORBIC ACID
     Indication: PARENTERAL NUTRITION
     Route: 065
     Dates: start: 20180820, end: 20180824
  3. POTASSIUM CHLORIDE. [Suspect]
     Active Substance: POTASSIUM CHLORIDE
     Indication: PARENTERAL NUTRITION
     Dosage: BAXTER OFF LICENSE SPECIAL
     Route: 065
  4. TRIOMEL 9 G/L NITROGEN 1070 KCAL/L WITH ELECTROLYTES, EMULSION FOR INF [Suspect]
     Active Substance: AMINO ACIDS\DEXTROSE\ELECTROLYTES NOS\SOYBEAN OIL
     Indication: PARENTERAL NUTRITION
     Route: 065
     Dates: start: 20180820, end: 20180824
  5. CERNEVIT [Suspect]
     Active Substance: VITAMINS
     Indication: PARENTERAL NUTRITION
     Route: 065
     Dates: start: 20180820, end: 20180824
  6. SODIUM GLYCEROPHOSPHATE [Suspect]
     Active Substance: SODIUM GLYCEROPHOSPHATE
     Indication: PARENTERAL NUTRITION
     Dosage: BAXTER OFF LICENSE SPECIAL
     Route: 065
  7. SODIUM ACETATE. [Suspect]
     Active Substance: SODIUM ACETATE
     Indication: PARENTERAL NUTRITION
     Route: 065
  8. WATER FOR INJECTION [Suspect]
     Active Substance: WATER
     Route: 065
     Dates: start: 20180820, end: 20180824
  9. PEDITRACE [Suspect]
     Active Substance: CUPRIC CHLORIDE\MANGANESE CHLORIDE\POTASSIUM IODIDE\SODIUM FLUORIDE\SODIUM SELENITE\ZINC CHLORIDE
     Indication: PARENTERAL NUTRITION
     Route: 065
  10. PRIMENE 10% [Suspect]
     Active Substance: AMINO ACIDS
     Indication: PARENTERAL NUTRITION
     Route: 065
  11. STERILE WATER FOR IRRIGATION [Suspect]
     Active Substance: WATER
     Indication: PARENTERAL NUTRITION
     Dosage: WATER FOR TPN FORMULATIONS
     Route: 065
  12. CALCIUM CHLORIDE. [Suspect]
     Active Substance: CALCIUM CHLORIDE
     Indication: PARENTERAL NUTRITION
     Dosage: 1MMOL/ML, BAXTER OFF LICENSE SPECIAL.
     Route: 065
  13. SOLIVITO N [Suspect]
     Active Substance: ASCORBIC ACID\BIOTIN\CYANOCOBALAMIN\FOLIC ACID\NIACINAMIDE\PANTOTHENIC ACID\PYRIDOXINE\RIBOFLAVIN\THIAMINE
     Indication: PARENTERAL NUTRITION
     Route: 065
  14. WATER FOR INJECTION [Suspect]
     Active Substance: WATER
     Indication: PARENTERAL NUTRITION
     Route: 065
  15. MAGNESIUM SULFATE. [Suspect]
     Active Substance: MAGNESIUM SULFATE
     Indication: PARENTERAL NUTRITION
     Route: 065
  16. POTASSIUM ACETATE. [Suspect]
     Active Substance: POTASSIUM ACETATE
     Indication: PARENTERAL NUTRITION
     Dosage: 4.9G/10ML
     Route: 065

REACTIONS (1)
  - Systemic candida [Recovering/Resolving]

NARRATIVE: CASE EVENT DATE: 20180830
